FAERS Safety Report 21029702 (Version 2)
Quarter: 2022Q3

REPORT INFORMATION
  Report Type: Report from Study
  Country: US (occurrence: US)
  Receive Date: 20220630
  Receipt Date: 20220707
  Transmission Date: 20221027
  Serious: Yes (Other)
  Sender: FDA-Public Use
  Company Number: US-SEATTLE GENETICS-2022SGN06071

PATIENT
  Sex: Female

DRUGS (2)
  1. TUCATINIB [Suspect]
     Active Substance: TUCATINIB
     Indication: Breast cancer female
     Route: 065
  2. TUCATINIB [Suspect]
     Active Substance: TUCATINIB
     Dosage: UNK
     Route: 065

REACTIONS (2)
  - Pulmonary toxicity [Unknown]
  - Product dose omission issue [Unknown]
